FAERS Safety Report 15289760 (Version 1)
Quarter: 2018Q3

REPORT INFORMATION
  Report Type: Spontaneous
  Country: US (occurrence: US)
  Receive Date: 20180803
  Receipt Date: 20180803
  Transmission Date: 20181010
  Serious: Yes (Other)
  Sender: FDA-Public Use
  Company Number: None

PATIENT
  Age: 39 Year
  Sex: Female
  Weight: 67.5 kg

DRUGS (3)
  1. PHENTERMINE. [Suspect]
     Active Substance: PHENTERMINE
     Indication: DECREASED APPETITE
     Dosage: ?          QUANTITY:1 DF DOSAGE FORM;?
     Route: 048
     Dates: start: 20180716, end: 20180802
  2. MAGNESIUM [Concomitant]
     Active Substance: MAGNESIUM
  3. TEGRETOL [Concomitant]
     Active Substance: CARBAMAZEPINE

REACTIONS (3)
  - Retinal artery thrombosis [None]
  - Blindness unilateral [None]
  - Blindness transient [None]

NARRATIVE: CASE EVENT DATE: 20180721
